FAERS Safety Report 4807573-5 (Version None)
Quarter: 2005Q4

REPORT INFORMATION
  Report Type: 
  Country: None (occurrence: None)
  Receive Date: 20051024
  Receipt Date: 20051013
  Transmission Date: 20060501
  Serious: Yes (Other)
  Sender: FDA-Public Use
  Company Number: PHBS2005CA15097

PATIENT
  Sex: Female

DRUGS (4)
  1. CLOZARIL [Suspect]
     Dosage: 800 TO 825 MG/D
     Route: 048
  2. ZYPREXA [Suspect]
     Dosage: 10 MG, QHS
     Route: 065
  3. LARGACTIL [Suspect]
     Dosage: 150 MG, QHS
     Route: 065
  4. NOZINAN [Suspect]
     Dosage: 25 MG, PRN

REACTIONS (5)
  - ALCOHOLISM [None]
  - DRUG INTERACTION [None]
  - DRUG LEVEL INCREASED [None]
  - LABORATORY TEST ABNORMAL [None]
  - RHINORRHOEA [None]
